FAERS Safety Report 9593177 (Version 1)
Quarter: 2013Q4

REPORT INFORMATION
  Report Type: Report from Study
  Country: BR (occurrence: BR)
  Receive Date: 20131004
  Receipt Date: 20131004
  Transmission Date: 20140711
  Serious: Yes (Other)
  Sender: FDA-Public Use
  Company Number: PHHY2013BR109147

PATIENT
  Age: 56 Year
  Sex: Male

DRUGS (3)
  1. ATENOLOL [Suspect]
     Dosage: 50 MG, QD
  2. SIMVASTATIN [Suspect]
     Dosage: 10 MG, UNK
  3. METFORMIN [Suspect]
     Dosage: 500 MG, UNK

REACTIONS (17)
  - Chronic obstructive pulmonary disease [Unknown]
  - Dyspnoea [Unknown]
  - Obstructive airways disorder [Unknown]
  - Productive cough [Unknown]
  - Cough [Unknown]
  - Hypoxia [Unknown]
  - Hypercapnia [Unknown]
  - Wheezing [Unknown]
  - Dysphonia [Unknown]
  - Respiratory rate increased [Unknown]
  - Body mass index increased [Unknown]
  - Blood pressure increased [Unknown]
  - Central obesity [Unknown]
  - Lung hyperinflation [Unknown]
  - Hypertensive heart disease [Unknown]
  - Sleep apnoea syndrome [Unknown]
  - Overlap syndrome [Unknown]
